FAERS Safety Report 23896421 (Version 1)
Quarter: 2024Q2

REPORT INFORMATION
  Report Type: Spontaneous
  Country: PT (occurrence: PT)
  Receive Date: 20240524
  Receipt Date: 20240524
  Transmission Date: 20240716
  Serious: Yes (Death, Life-Threatening, Hospitalization, Other)
  Sender: FDA-Public Use
  Company Number: PT-ROCHE-632258

PATIENT
  Age: 57 Year
  Sex: Female
  Weight: 56 kg

DRUGS (11)
  1. DIAZEPAM [Suspect]
     Active Substance: DIAZEPAM
     Indication: Depression
  2. ESTAZOLAM [Suspect]
     Active Substance: ESTAZOLAM
     Indication: Depression
  3. TIANEPTINE [Suspect]
     Active Substance: TIANEPTINE
     Indication: Depression
  4. HERCEPTIN [Suspect]
     Active Substance: TRASTUZUMAB
     Indication: Breast cancer
     Dosage: HERCEPTIN POWDER FOR CONCENTRATE FOR SOLUTION FOR INFUSION - 150 MG
     Dates: start: 20081008, end: 20090309
  5. DOXORUBICIN [Suspect]
     Active Substance: DOXORUBICIN
     Indication: Breast cancer
     Dosage: FREQUENCY: CYCLE OF 21/ 21 DAYS.
     Dates: start: 200804, end: 200807
  6. TAMOXIFEN [Concomitant]
     Active Substance: TAMOXIFEN
     Indication: Breast cancer
     Dates: start: 20080918, end: 20090323
  7. ATENOLOL [Concomitant]
     Active Substance: ATENOLOL
     Indication: Supraventricular extrasystoles
     Dates: start: 200709, end: 20090316
  8. PERINDOPRIL ARGININE [Concomitant]
     Active Substance: PERINDOPRIL ARGININE
     Indication: Ejection fraction decreased
     Dates: start: 20090316, end: 20090323
  9. CYCLOPHOSPHAMIDE [Concomitant]
     Active Substance: CYCLOPHOSPHAMIDE
     Indication: Breast cancer
     Dosage: DOSE: 500 M/M2, FREQUENCY: CYCLE OF 21/ 21 DAYS,
     Dates: start: 200804, end: 200807
  10. CYCLOPHOSPHAMIDE [Concomitant]
     Active Substance: CYCLOPHOSPHAMIDE
     Dosage: DOSE: 500 M/M2, FREQUENCY: CYCLE OF 21/ 21 DAYS,
     Dates: start: 200804, end: 200807
  11. DOCETAXEL [Concomitant]
     Active Substance: DOCETAXEL\DOCETAXEL ANHYDROUS
     Indication: Breast cancer
     Dosage: FREQUENCY: CYCLE OF 21/ 21 DAYS.
     Dates: start: 200804, end: 200807

REACTIONS (5)
  - Sudden death [Fatal]
  - Left atrial enlargement [Fatal]
  - Ejection fraction decreased [Fatal]
  - Arrhythmia [Fatal]
  - Depression [Unknown]

NARRATIVE: CASE EVENT DATE: 20090101
